FAERS Safety Report 11021152 (Version 2)
Quarter: 2015Q2

REPORT INFORMATION
  Report Type: Spontaneous
  Country: JP (occurrence: JP)
  Receive Date: 20150413
  Receipt Date: 20150521
  Transmission Date: 20150821
  Serious: Yes (Hospitalization)
  Sender: FDA-Public Use
  Company Number: JP-MYLANLABS-2015M1010199

PATIENT

DRUGS (3)
  1. PREDNISOLONE TABLETS 1^HOEI^ [Suspect]
     Active Substance: PREDNISOLONE
     Dosage: 30 MG, UNK
     Route: 048
  2. BENAMBAX [Suspect]
     Active Substance: PENTAMIDINE
     Indication: PNEUMOCYSTIS JIROVECII PNEUMONIA
     Dosage: 160 MG, UNK
     Route: 065
  3. PREDNISOLONE TABLETS 1^HOEI^ [Suspect]
     Active Substance: PREDNISOLONE
     Indication: DRUG ERUPTION
     Route: 048

REACTIONS (3)
  - Pneumocystis jirovecii pneumonia [Unknown]
  - Hypoglycaemia [Recovering/Resolving]
  - Diabetes mellitus [Recovering/Resolving]
